FAERS Safety Report 5730572-6 (Version None)
Quarter: 2008Q2

REPORT INFORMATION
  Report Type: 
  Country: None (occurrence: None)
  Receive Date: 20080507
  Receipt Date: 20080501
  Transmission Date: 20081010
  Serious: Yes (Life-Threatening, Hospitalization, Disabling, Other)
  Sender: FDA-Public Use
  Company Number: A0714740A

PATIENT
  Age: 55 Year
  Sex: Male
  Weight: 138.2 kg

DRUGS (6)
  1. AVANDIA [Suspect]
     Indication: TYPE 2 DIABETES MELLITUS
     Dosage: 8MG PER DAY
     Route: 048
     Dates: end: 20070601
  2. NOVOLIN 70/30 [Concomitant]
     Indication: DRUG USE FOR UNKNOWN INDICATION
     Dates: start: 20040101
  3. TESTOSTERONE [Concomitant]
     Dates: start: 20040101
  4. GABITRIL [Concomitant]
     Indication: DRUG USE FOR UNKNOWN INDICATION
     Dates: start: 20040101
  5. KLONOPIN [Concomitant]
     Indication: DRUG USE FOR UNKNOWN INDICATION
     Dates: start: 20040101
  6. LOPRESSOR [Concomitant]
     Indication: DRUG USE FOR UNKNOWN INDICATION
     Dates: start: 20040101

REACTIONS (6)
  - ARRHYTHMIA [None]
  - ARTERIAL DISORDER [None]
  - CORONARY ARTERY DISEASE [None]
  - DIARRHOEA [None]
  - FATIGUE [None]
  - MYOCARDIAL INFARCTION [None]
